FAERS Safety Report 8575873-1 (Version None)
Quarter: 2012Q3

REPORT INFORMATION
  Report Type: 
  Country: None (occurrence: None)
  Receive Date: 20120807
  Receipt Date: 20120711
  Transmission Date: 20120928
  Serious: No
  Sender: FDA-Public Use
  Company Number: US-009507513-1207USA002784

PATIENT

DRUGS (1)
  1. NASONEX [Suspect]
     Indication: CHRONIC SINUSITIS
     Route: 045

REACTIONS (2)
  - DRUG DOSE OMISSION [None]
  - NASAL CONGESTION [None]
